FAERS Safety Report 8678770 (Version 2)
Quarter: 2012Q4

REPORT INFORMATION
  Report Type: 
  Country: GB (occurrence: GB)
  Receive Date: 20120723
  Receipt Date: 20120910
  Transmission Date: 20130627
  Serious: Yes (Hospitalization, Other)
  Sender: FDA-Public Use
  Company Number: PHHY2012GB061618

PATIENT
  Age: 44 Year
  Sex: Female
  Weight: 50 kg

DRUGS (2)
  1. DOXYCYCLINE [Suspect]
     Indication: OTITIS MEDIA ACUTE
     Dosage: 200 mg, UNK
     Route: 048
     Dates: start: 20120622, end: 20120622
  2. LEVOTHYROXINE [Concomitant]

REACTIONS (3)
  - Drug-induced liver injury [Recovering/Resolving]
  - Urinary tract infection [Unknown]
  - Nausea [Unknown]
